FAERS Safety Report 15764989 (Version 2)
Quarter: 2019Q1

REPORT INFORMATION
  Report Type: Spontaneous
  Country: US (occurrence: US)
  Receive Date: 20181227
  Receipt Date: 20190102
  Transmission Date: 20190417
  Serious: Yes (Hospitalization, Other)
  Sender: FDA-Public Use
  Company Number: US-GBPHLPEH-2018-PEL-003421

PATIENT

DRUGS (2)
  1. GABLOFEN [Suspect]
     Active Substance: BACLOFEN
     Indication: CEREBRAL PALSY
     Dosage: 375 ?G, QD
     Route: 037
     Dates: end: 20180419
  2. GABLOFEN [Suspect]
     Active Substance: BACLOFEN
     Dosage: 280 ?G, QD
     Route: 037
     Dates: start: 20180419

REACTIONS (5)
  - Depressed level of consciousness [Recovering/Resolving]
  - Mental status changes [Unknown]
  - Hyporesponsive to stimuli [Recovering/Resolving]
  - Chronic kidney disease [Not Recovered/Not Resolved]
  - Overdose [Recovering/Resolving]
